FAERS Safety Report 6249403-3 (Version None)
Quarter: 2009Q2

REPORT INFORMATION
  Report Type: 
  Country: None (occurrence: None)
  Receive Date: 20090629
  Receipt Date: 20090618
  Transmission Date: 20091009
  Serious: Yes (Other)
  Sender: FDA-Public Use
  Company Number: DE-BIOGENIDEC-2008BI005623

PATIENT
  Age: 38 Year
  Sex: Male

DRUGS (4)
  1. TYSABRI [Suspect]
     Indication: MULTIPLE SCLEROSIS
     Route: 042
     Dates: start: 20071008, end: 20071107
  2. CARBAMAZEPINE [Concomitant]
     Indication: PAIN
     Route: 048
  3. MIRTAZAPINE [Concomitant]
     Indication: DEPRESSION
     Route: 048
  4. BACLOFEN [Concomitant]
     Indication: MUSCLE SPASTICITY
     Route: 048

REACTIONS (1)
  - TUBERCULOSIS [None]
